FAERS Safety Report 9865480 (Version 1)
Quarter: 2014Q1

REPORT INFORMATION
  Report Type: Spontaneous
  Country: US (occurrence: US)
  Receive Date: 20140203
  Receipt Date: 20140203
  Transmission Date: 20141002
  Serious: No
  Sender: FDA-Public Use
  Company Number: US-ALLERGAN-1308739US

PATIENT
  Age: 69 Year
  Sex: Male

DRUGS (6)
  1. RESTASIS [Suspect]
     Indication: EYE IRRITATION
     Dosage: UNK
     Route: 047
     Dates: start: 201305
  2. ATENOLOL [Concomitant]
     Indication: HYPERTENSION
     Dosage: 25 MG, QD
     Route: 048
  3. MOTRIN [Concomitant]
     Indication: BACK PAIN
     Dosage: 800 MG, UNK
     Route: 048
  4. OTC PRILOSEC [Concomitant]
     Indication: GASTROOESOPHAGEAL REFLUX DISEASE
     Dosage: UNK, QD
     Route: 048
  5. THERATEARS                         /00007001/ [Concomitant]
     Dosage: UNK UNK, PRN
     Route: 047
  6. CVS LUBRICANT GEL DROPS NOS [Concomitant]
     Indication: PRODUCT USED FOR UNKNOWN INDICATION
     Route: 047

REACTIONS (3)
  - Inappropriate schedule of drug administration [Unknown]
  - Incorrect dose administered [Unknown]
  - Vision blurred [Unknown]
